FAERS Safety Report 19832179 (Version 1)
Quarter: 2021Q3

REPORT INFORMATION
  Report Type: Other
  Country: US (occurrence: US)
  Receive Date: 20210915
  Receipt Date: 20210915
  Transmission Date: 20211014
  Serious: Yes (Hospitalization)
  Sender: FDA-Public Use
  Company Number: US-ROCHE-2907685

PATIENT
  Sex: Female

DRUGS (1)
  1. OCREVUS [Suspect]
     Active Substance: OCRELIZUMAB
     Indication: RELAPSING MULTIPLE SCLEROSIS
     Dosage: LAST OF TREATMENT 21/JU/2021 AND ANTICIPATED DATE OF TREATMENT 12/JAN/2022
     Route: 042
     Dates: start: 20190729

REACTIONS (1)
  - Urinary tract infection [Unknown]
